FAERS Safety Report 5820015-6 (Version None)
Quarter: 2008Q3

REPORT INFORMATION
  Report Type: 
  Country: None (occurrence: None)
  Receive Date: 20080718
  Receipt Date: 20080718
  Transmission Date: 20090109
  Serious: No
  Sender: FDA-Public Use
  Company Number: None

PATIENT
  Sex: Female

DRUGS (2)
  1. DIGITEK 0.25MG AMIDE [Suspect]
     Dosage: 1 TABLET DAILY PO
     Route: 048
     Dates: start: 20080107, end: 20080404
  2. DIGITEK 0.25MG AMIDE [Suspect]
     Dosage: 1 TABLET DAILY PO
     Route: 048
     Dates: start: 20080404, end: 20080704

REACTIONS (3)
  - FALL [None]
  - INJURY [None]
  - PHARMACEUTICAL PRODUCT COMPLAINT [None]
